FAERS Safety Report 12219055 (Version 4)
Quarter: 2016Q3

REPORT INFORMATION
  Report Type: Spontaneous
  Country: US (occurrence: US)
  Receive Date: 20160329
  Receipt Date: 20160817
  Transmission Date: 20161109
  Serious: Yes (Death)
  Sender: FDA-Public Use
  Company Number: US-INSYS THERAPEUTICS, INC-INS201603-000126

PATIENT
  Age: 32 Year
  Sex: Male

DRUGS (14)
  1. KLONOPIN [Suspect]
     Active Substance: CLONAZEPAM
  2. LOPRESSOR [Concomitant]
     Active Substance: METOPROLOL TARTRATE
  3. KEFLEX [Concomitant]
     Active Substance: CEPHALEXIN
  4. OXYCONTIN [Suspect]
     Active Substance: OXYCODONE HYDROCHLORIDE
  5. VITAMIN D3 [Concomitant]
     Active Substance: CHOLECALCIFEROL
  6. SUBSYS [Suspect]
     Active Substance: FENTANYL
     Indication: BACK PAIN
     Route: 060
  7. XANAX [Suspect]
     Active Substance: ALPRAZOLAM
  8. VITAMIN D [Concomitant]
     Active Substance: CHOLECALCIFEROL
  9. MORPHINE [Suspect]
     Active Substance: MORPHINE
  10. EFFEXOR [Suspect]
     Active Substance: VENLAFAXINE HYDROCHLORIDE
  11. SUBSYS [Suspect]
     Active Substance: FENTANYL
     Indication: BACK PAIN
  12. MARIJUANA [Suspect]
     Active Substance: CANNABIS SATIVA SUBSP. INDICA TOP
  13. DURAGESIC [Suspect]
     Active Substance: FENTANYL
  14. BELSOMRA [Concomitant]
     Active Substance: SUVOREXANT

REACTIONS (4)
  - Off label use [Unknown]
  - Intentional product misuse [Unknown]
  - Toxicity to various agents [Fatal]
  - Incorrect route of drug administration [Unknown]

NARRATIVE: CASE EVENT DATE: 20160226
